FAERS Safety Report 7595978-1 (Version None)
Quarter: 2011Q3

REPORT INFORMATION
  Report Type: 
  Country: None (occurrence: None)
  Receive Date: 20110707
  Receipt Date: 20110627
  Transmission Date: 20111222
  Serious: Yes (Hospitalization)
  Sender: FDA-Public Use
  Company Number: PHHY2011US57863

PATIENT
  Sex: Male

DRUGS (1)
  1. EXJADE [Suspect]
     Dosage: 500 MG, QID
     Route: 048

REACTIONS (3)
  - APLASTIC ANAEMIA [None]
  - PAIN [None]
  - PLATELET COUNT DECREASED [None]
